FAERS Safety Report 7297729-7 (Version None)
Quarter: 2011Q1

REPORT INFORMATION
  Report Type: 
  Country: None (occurrence: None)
  Receive Date: 20110217
  Receipt Date: 20110214
  Transmission Date: 20110831
  Serious: No
  Sender: FDA-Public Use
  Company Number: US-ROXANE LABORATORIES, INC.-2011-RO-00184RO

PATIENT
  Sex: Male

DRUGS (2)
  1. PREDNISONE [Suspect]
     Dosage: 40 MG
     Route: 048
     Dates: start: 20110211, end: 20110212
  2. PREDNISONE [Suspect]
     Indication: GOUT
     Dosage: 60 MG
     Route: 048
     Dates: start: 20110209, end: 20110210

REACTIONS (1)
  - DRUG INEFFECTIVE [None]
